FAERS Safety Report 7351126-4 (Version None)
Quarter: 2011Q1

REPORT INFORMATION
  Report Type: 
  Country: None (occurrence: None)
  Receive Date: 20110314
  Receipt Date: 20090706
  Transmission Date: 20110831
  Serious: Yes (Hospitalization)
  Sender: FDA-Public Use
  Company Number: AU-PFIZER INC-2009236001

PATIENT
  Age: 31 Year
  Sex: Female

DRUGS (1)
  1. CHAMPIX [Suspect]
     Dosage: UNK
     Route: 048

REACTIONS (14)
  - ANXIETY [None]
  - CONFUSIONAL STATE [None]
  - ANGER [None]
  - HEART RATE INCREASED [None]
  - WITHDRAWAL SYNDROME [None]
  - CRYING [None]
  - THINKING ABNORMAL [None]
  - HALLUCINATION [None]
  - PARANOIA [None]
  - WEIGHT DECREASED [None]
  - HALLUCINATION, VISUAL [None]
  - MOOD SWINGS [None]
  - FORMICATION [None]
  - FEAR [None]
